FAERS Safety Report 21702361 (Version 2)
Quarter: 2023Q1

REPORT INFORMATION
  Report Type: Report from Study
  Country: US (occurrence: US)
  Receive Date: 20221208
  Receipt Date: 20230222
  Transmission Date: 20230418
  Serious: Yes (Hospitalization)
  Sender: FDA-Public Use
  Company Number: US-ABBVIE-4229094

PATIENT
  Sex: Female
  Weight: 64 kg

DRUGS (10)
  1. RINVOQ [Suspect]
     Active Substance: UPADACITINIB
     Indication: Rheumatoid arthritis
     Dosage: STRENGTH 15 MG
     Route: 048
     Dates: start: 2017, end: 20221005
  2. TRAMADOL [Concomitant]
     Active Substance: TRAMADOL
     Indication: Pain
  3. METOPROLOL [Concomitant]
     Active Substance: METOPROLOL
     Indication: Hypertension
  4. PREDNISONE [Concomitant]
     Active Substance: PREDNISONE
     Indication: Rheumatoid arthritis
  5. ELIQUIS [Concomitant]
     Active Substance: APIXABAN
     Indication: Anticoagulant therapy
  6. ATORVASTATIN [Concomitant]
     Active Substance: ATORVASTATIN
     Indication: Blood cholesterol abnormal
  7. LEVOTHYROXINE [Concomitant]
     Active Substance: LEVOTHYROXINE
     Indication: Hypothyroidism
  8. AMLODIPINE [Concomitant]
     Active Substance: AMLODIPINE BESYLATE
     Indication: Blood pressure management
  9. TYLENOL [Concomitant]
     Active Substance: ACETAMINOPHEN
     Indication: Pain
  10. Morphine Concentrate [Concomitant]
     Indication: Pain

REACTIONS (8)
  - Pulmonary thrombosis [Recovering/Resolving]
  - Dyspnoea [Recovered/Resolved]
  - Contusion [Recovering/Resolving]
  - Limb injury [Recovering/Resolving]
  - Thrombosis [Recovering/Resolving]
  - Disorientation [Recovered/Resolved]
  - Amnesia [Unknown]
  - Oxygen saturation abnormal [Recovering/Resolving]

NARRATIVE: CASE EVENT DATE: 20210101
